FAERS Safety Report 4464647-9 (Version None)
Quarter: 2004Q3

REPORT INFORMATION
  Report Type: 
  Country: None (occurrence: None)
  Receive Date: 20040928
  Receipt Date: 20040913
  Transmission Date: 20050211
  Serious: Yes (Hospitalization)
  Sender: FDA-Public Use
  Company Number: 2004AP04289

PATIENT
  Age: 81 Year
  Sex: Female

DRUGS (8)
  1. IRESSA [Suspect]
     Indication: LUNG ADENOCARCINOMA
     Dosage: 250 MG DAILY PO
     Route: 048
     Dates: start: 20040526, end: 20040812
  2. NORVASC [Concomitant]
  3. PERSANTIN [Concomitant]
  4. MUCOSTA [Concomitant]
  5. JUVELA NICOTINATE [Concomitant]
  6. GASCON [Concomitant]
  7. RIZE [Concomitant]
  8. HALCION [Concomitant]

REACTIONS (5)
  - ALANINE AMINOTRANSFERASE INCREASED [None]
  - ASPARTATE AMINOTRANSFERASE INCREASED [None]
  - DERMATITIS EXFOLIATIVE [None]
  - HEPATIC FUNCTION ABNORMAL [None]
  - SKIN ULCER [None]
